FAERS Safety Report 17555324 (Version 1)
Quarter: 2020Q1

REPORT INFORMATION
  Report Type: Spontaneous
  Country: US (occurrence: US)
  Receive Date: 20200317
  Receipt Date: 20200317
  Transmission Date: 20200409
  Serious: Yes (Other)
  Sender: FDA-Public Use
  Company Number: None

PATIENT
  Age: 31 Year
  Sex: Female
  Weight: 48 kg

DRUGS (1)
  1. IMPLANON [Suspect]
     Active Substance: ETONOGESTREL

REACTIONS (7)
  - Acne [None]
  - Haemorrhage [None]
  - Dizziness [None]
  - Vomiting [None]
  - Rash [None]
  - Decreased appetite [None]
  - Vision blurred [None]

NARRATIVE: CASE EVENT DATE: 20181101
